FAERS Safety Report 7794598-3 (Version None)
Quarter: 2011Q4

REPORT INFORMATION
  Report Type: 
  Country: None (occurrence: None)
  Receive Date: 20111004
  Receipt Date: 20110921
  Transmission Date: 20120403
  Serious: Yes (Other)
  Sender: FDA-Public Use
  Company Number: FR-CELGENEUS-056-21880-11092712

PATIENT
  Sex: Female

DRUGS (6)
  1. BACTRIM DS [Suspect]
     Route: 048
     Dates: start: 20110818
  2. HEXAQUINE [Concomitant]
     Route: 048
     Dates: start: 20110818
  3. REVLIMID [Suspect]
     Indication: MULTIPLE MYELOMA
     Dosage: 25 MILLIGRAM
     Route: 048
     Dates: start: 20110818
  4. NEODEX [Concomitant]
     Route: 048
     Dates: start: 20110818
  5. ASPEGIC 325 [Concomitant]
     Route: 048
     Dates: start: 20110818
  6. DESLORATADINE [Concomitant]
     Indication: ALLERGY PROPHYLAXIS
     Route: 065
     Dates: start: 20110818

REACTIONS (3)
  - ANGIOEDEMA [None]
  - JAUNDICE [None]
  - DIARRHOEA [None]
